FAERS Safety Report 25411879 (Version 1)
Quarter: 2025Q2

REPORT INFORMATION
  Report Type: Spontaneous
  Country: DE (occurrence: DE)
  Receive Date: 20250609
  Receipt Date: 20250609
  Transmission Date: 20250717
  Serious: Yes (Other)
  Sender: NOVARTIS
  Company Number: DE-002147023-NVSC2025DE091480

PATIENT
  Sex: Male

DRUGS (1)
  1. KESIMPTA [Suspect]
     Active Substance: OFATUMUMAB
     Indication: Radiologically isolated syndrome
     Route: 065
     Dates: start: 2024

REACTIONS (2)
  - Magnetic resonance imaging abnormal [Unknown]
  - Off label use [Unknown]
